FAERS Safety Report 10597652 (Version 1)
Quarter: 2014Q4

REPORT INFORMATION
  Report Type: Spontaneous
  Country: US (occurrence: None)
  Receive Date: 20141120
  Receipt Date: 20141120
  Transmission Date: 20150529
  Serious: Yes (Other)
  Sender: FDA-Public Use
  Company Number: None

PATIENT
  Age: 68 Year
  Sex: Female

DRUGS (7)
  1. HYDROCHLOROTHIAZIDE. [Concomitant]
     Active Substance: HYDROCHLOROTHIAZIDE
  2. XARELTO [Suspect]
     Active Substance: RIVAROXABAN
     Indication: HEART RATE IRREGULAR
     Dosage: 1 TABLET ,  MOUTH
     Route: 048
     Dates: start: 20140107
  3. KLOR-CON M 20 ER [Concomitant]
  4. METOPROLOL TARTRATE. [Concomitant]
     Active Substance: METOPROLOL TARTRATE
  5. XARELTO [Concomitant]
     Active Substance: RIVAROXABAN
  6. LOVASTATIN. [Concomitant]
     Active Substance: LOVASTATIN
  7. VITAMIN D2 [Concomitant]
     Active Substance: ERGOCALCIFEROL

REACTIONS (2)
  - Epistaxis [None]
  - Headache [None]

NARRATIVE: CASE EVENT DATE: 20140708
